FAERS Safety Report 20308329 (Version 2)
Quarter: 2022Q4

REPORT INFORMATION
  Report Type: Spontaneous
  Country: US (occurrence: US)
  Receive Date: 20220107
  Receipt Date: 20221007
  Transmission Date: 20230112
  Serious: Yes (Other)
  Sender: FDA-Public Use
  Company Number: US-SA-SAC20220104000719

PATIENT
  Age: 56 Year
  Sex: Male

DRUGS (2)
  1. ZANTAC [Suspect]
     Active Substance: RANITIDINE HYDROCHLORIDE
     Indication: Dyspepsia
     Dosage: 150 MG, FREQUENCY: OCCASIONAL
     Route: 065
     Dates: start: 201404, end: 201905
  2. ZANTAC [Suspect]
     Active Substance: RANITIDINE HYDROCHLORIDE

REACTIONS (1)
  - Oesophageal carcinoma [Unknown]

NARRATIVE: CASE EVENT DATE: 20190601
